FAERS Safety Report 5890183-9 (Version None)
Quarter: 2008Q3

REPORT INFORMATION
  Report Type: 
  Country: None (occurrence: None)
  Receive Date: 20080919
  Receipt Date: 20080908
  Transmission Date: 20090109
  Serious: Yes (Hospitalization)
  Sender: FDA-Public Use
  Company Number: US-PFIZER INC-2008075500

PATIENT
  Sex: Male

DRUGS (3)
  1. CHANTIX [Suspect]
     Indication: SMOKING CESSATION THERAPY
     Route: 048
     Dates: start: 20080804, end: 20080807
  2. GEMFIBROZIL [Concomitant]
  3. RISPERDAL [Concomitant]

REACTIONS (2)
  - BLOOD PRESSURE INCREASED [None]
  - VISUAL IMPAIRMENT [None]
